FAERS Safety Report 13113652 (Version 4)
Quarter: 2017Q2

REPORT INFORMATION
  Report Type: Report from Study
  Country: BR (occurrence: BR)
  Receive Date: 20170113
  Receipt Date: 20170530
  Transmission Date: 20170830
  Serious: Yes (Other)
  Sender: FDA-Public Use
  Company Number: BR-ALEXION PHARMACEUTICALS INC-A201700167

PATIENT
  Age: 10 Year
  Sex: Female
  Weight: 34.8 kg

DRUGS (3)
  1. SOLIRIS [Suspect]
     Active Substance: ECULIZUMAB
     Dosage: 900 MG, UNK
     Route: 042
     Dates: start: 20160802
  2. SOLIRIS [Suspect]
     Active Substance: ECULIZUMAB
     Dosage: 1200 MG, EVERY 14 DAYS
     Route: 065
     Dates: start: 20170202
  3. SOLIRIS [Suspect]
     Active Substance: ECULIZUMAB
     Indication: HAEMOLYTIC URAEMIC SYNDROME
     Dosage: 600 MG, UNK
     Route: 042
     Dates: start: 20160719, end: 20160726

REACTIONS (16)
  - Red blood cell count abnormal [Unknown]
  - Haematocrit abnormal [Unknown]
  - Haemoglobin decreased [Unknown]
  - Oropharyngeal pain [Recovered/Resolved]
  - Weight decreased [Unknown]
  - Blood urea abnormal [Not Recovered/Not Resolved]
  - Blood pressure decreased [Unknown]
  - Anaemia [Unknown]
  - Pharyngeal oedema [Recovered/Resolved]
  - Haemodialysis [Not Recovered/Not Resolved]
  - Platelet count abnormal [Unknown]
  - Weight increased [Unknown]
  - Haemolytic uraemic syndrome [Unknown]
  - Incorrect dose administered [Not Recovered/Not Resolved]
  - Viral upper respiratory tract infection [Recovered/Resolved]
  - Blood creatinine increased [Not Recovered/Not Resolved]

NARRATIVE: CASE EVENT DATE: 20161231
